FAERS Safety Report 8766704 (Version 1)
Quarter: 2012Q4

REPORT INFORMATION
  Report Type: 
  Country: US (occurrence: US)
  Receive Date: 20120904
  Receipt Date: 20120904
  Transmission Date: 20130627
  Serious: No
  Sender: FDA-Public Use
  Company Number: US-MYLANLABS-2011S1017874

PATIENT
  Age: 22 Year
  Sex: Male

DRUGS (2)
  1. FLUPHENAZINE HYDROCHLORIDE TABLETS, USP [Suspect]
     Indication: DEPRESSION
     Route: 048
     Dates: start: 1988
  2. BENZTROPINE [Suspect]
     Indication: TREMOR
     Route: 048
     Dates: start: 1988

REACTIONS (1)
  - Skin odour abnormal [Not Recovered/Not Resolved]
